FAERS Safety Report 11067505 (Version 2)
Quarter: 2015Q2

REPORT INFORMATION
  Report Type: Spontaneous
  Country: US (occurrence: US)
  Receive Date: 20150427
  Receipt Date: 20150505
  Transmission Date: 20150821
  Serious: No
  Sender: FDA-Public Use
  Company Number: US-AMGEN-USASP2015039418

PATIENT
  Age: 44 Year
  Sex: Female
  Weight: 86.17 kg

DRUGS (3)
  1. ENBREL [Suspect]
     Active Substance: ETANERCEPT
     Indication: PSORIASIS
  2. ENBREL [Suspect]
     Active Substance: ETANERCEPT
     Indication: PSORIATIC ARTHROPATHY
     Dosage: 50 MG, 2 TIMES/WK
     Route: 065
     Dates: start: 20150306, end: 20150317
  3. METHOTREXATE [Concomitant]
     Active Substance: METHOTREXATE
     Indication: PSORIASIS
     Dosage: 25 MG, QWK
     Route: 048
     Dates: start: 20120709

REACTIONS (6)
  - Pyrexia [Recovered/Resolved]
  - Arthralgia [Recovered/Resolved]
  - Drug hypersensitivity [Not Recovered/Not Resolved]
  - Fatigue [Recovered/Resolved]
  - Injection site erythema [Recovered/Resolved]
  - Injection site swelling [Recovered/Resolved]

NARRATIVE: CASE EVENT DATE: 2015
